FAERS Safety Report 4633881-7 (Version None)
Quarter: 2005Q2

REPORT INFORMATION
  Report Type: 
  Country: None (occurrence: None)
  Receive Date: 20050412
  Receipt Date: 20050412
  Transmission Date: 20051028
  Serious: No
  Sender: FDA-Public Use
  Company Number: None

PATIENT
  Sex: Male
  Weight: 79.4 kg

DRUGS (2)
  1. CYTARABINE [Suspect]
     Indication: ACUTE MYELOID LEUKAEMIA
     Dosage: 100MG/M2/DAY IV; 2000MG/M2/DAY IV , SEE IMAGE
     Route: 042
     Dates: start: 20050309
  2. DAUNORUBICIN [Suspect]
     Dosage: 60 MG/M2 DAY BY IVP ON DAYS 1-3; SECOND REMISSION INDUCTION: 60 MG/M2/DAY IVP ON DAYS 1-2
     Route: 042

REACTIONS (14)
  - ABDOMINAL PAIN [None]
  - ANURIA [None]
  - BIOPSY BONE MARROW ABNORMAL [None]
  - CHOLANGITIS [None]
  - CLOSTRIDIUM COLITIS [None]
  - DIARRHOEA [None]
  - FEBRILE NEUTROPENIA [None]
  - FLUID OVERLOAD [None]
  - HAEMODIALYSIS [None]
  - HYPOXIA [None]
  - LIVER DISORDER [None]
  - LIVER FUNCTION TEST ABNORMAL [None]
  - RENAL FAILURE ACUTE [None]
  - RETINAL HAEMORRHAGE [None]
